FAERS Safety Report 8425737 (Version 5)
Quarter: 2018Q2

REPORT INFORMATION
  Report Type: Report from Study
  Country: US (occurrence: US)
  Receive Date: 20120224
  Receipt Date: 20180515
  Transmission Date: 20180711
  Serious: Yes (Hospitalization, Other)
  Sender: FDA-Public Use
  Company Number: US-JNJFOC-20120209055

PATIENT
  Age: 13 Year
  Sex: Male
  Weight: 38.9 kg

DRUGS (7)
  1. ZYRTEC [Concomitant]
     Active Substance: CETIRIZINE HYDROCHLORIDE
  2. VITAMIN D [Concomitant]
     Active Substance: CHOLECALCIFEROL
  3. REMICADE [Suspect]
     Active Substance: INFLIXIMAB
     Indication: INFLAMMATORY BOWEL DISEASE
     Route: 042
     Dates: start: 20101104
  4. TUMS [Concomitant]
     Active Substance: CALCIUM CARBONATE
  5. FERROUS SULFATE. [Concomitant]
     Active Substance: FERROUS SULFATE
  6. 5-ASA [Concomitant]
     Active Substance: MESALAMINE
     Route: 048
  7. MULTIVITAMINS [Concomitant]
     Active Substance: VITAMINS

REACTIONS (2)
  - Post-traumatic headache [Recovered/Resolved]
  - Concussion [Recovered/Resolved with Sequelae]

NARRATIVE: CASE EVENT DATE: 20111009
